FAERS Safety Report 17185444 (Version 1)
Quarter: 2019Q4

REPORT INFORMATION
  Report Type: Spontaneous
  Country: US (occurrence: US)
  Receive Date: 20191220
  Receipt Date: 20191220
  Transmission Date: 20200122
  Serious: No
  Sender: FDA-Public Use
  Company Number: US-BAYER-2019-233093

PATIENT
  Age: 19 Year
  Sex: Female

DRUGS (1)
  1. SKYLA [Suspect]
     Active Substance: LEVONORGESTREL
     Indication: PRODUCT USED FOR UNKNOWN INDICATION
     Dosage: 14 MCG/24HR, CONT
     Route: 015
     Dates: start: 201910, end: 20191125

REACTIONS (2)
  - Abdominal pain lower [None]
  - Medical device pain [None]

NARRATIVE: CASE EVENT DATE: 2019
